FAERS Safety Report 20840839 (Version 1)
Quarter: 2022Q2

REPORT INFORMATION
  Report Type: Report from Study
  Country: US (occurrence: US)
  Receive Date: 20220517
  Receipt Date: 20220517
  Transmission Date: 20220721
  Serious: No
  Sender: FDA-Public Use
  Company Number: US-ABBVIE-22P-163-4389313-00

PATIENT
  Age: 37 Year
  Sex: Female
  Weight: 67.6 kg

DRUGS (5)
  1. ELAGOLIX SODIUM\ESTRADIOL\NORETHINDRONE [Suspect]
     Active Substance: ELAGOLIX SODIUM\ESTRADIOL\NORETHINDRONE
     Indication: Uterine leiomyoma
     Dosage: ELAGOLIX 300MG/ESTRADIOL/NORETHINDRONE 1.0MG /0.5MG
     Route: 048
     Dates: start: 20190710, end: 20200611
  2. ELAGOLIX SODIUM\ESTRADIOL\NORETHINDRONE [Suspect]
     Active Substance: ELAGOLIX SODIUM\ESTRADIOL\NORETHINDRONE
     Indication: Uterine leiomyoma
     Dosage: ELAGOLIX 300MG/ESTRADIOL/NORETHINDRONE 1.0MG /0.5MG
     Route: 048
     Dates: start: 20200611
  3. ELAGOLIX [Suspect]
     Active Substance: ELAGOLIX
     Indication: Uterine leiomyoma
     Dosage: PM DOSE
     Route: 048
     Dates: start: 20200611
  4. VITAMIN D [Concomitant]
     Active Substance: VITAMIN D NOS
     Indication: Vitamin D decreased
     Route: 048
     Dates: start: 20190805
  5. FLONASE [Concomitant]
     Active Substance: FLUTICASONE PROPIONATE
     Indication: Seasonal allergy
     Route: 045
     Dates: start: 202202

REACTIONS (1)
  - Deep vein thrombosis [Not Recovered/Not Resolved]

NARRATIVE: CASE EVENT DATE: 20220415
